FAERS Safety Report 13309896 (Version 1)
Quarter: 2017Q1

REPORT INFORMATION
  Report Type: Spontaneous
  Country: US (occurrence: US)
  Receive Date: 20170308
  Receipt Date: 20170308
  Transmission Date: 20170428
  Serious: No
  Sender: FDA-Public Use
  Company Number: None

PATIENT
  Age: 7 Year
  Sex: Male
  Weight: 22 kg

DRUGS (1)
  1. DEFEROXAMINE 500 MG HOSPIRA [Suspect]
     Active Substance: DEFEROXAMINE\DEFEROXAMINE MESYLATE
     Indication: THALASSAEMIA
     Dosage: 500 MG 5 DAYS PER WEEK SQ
     Route: 058
     Dates: start: 20160331

REACTIONS (1)
  - Incorrect drug administration rate [None]

NARRATIVE: CASE EVENT DATE: 20170306
